FAERS Safety Report 8002625-3 (Version None)
Quarter: 2011Q4

REPORT INFORMATION
  Report Type: 
  Country: None (occurrence: None)
  Receive Date: 20111222
  Receipt Date: 20111215
  Transmission Date: 20120403
  Serious: Yes (Hospitalization)
  Sender: FDA-Public Use
  Company Number: US-VIIV HEALTHCARE LIMITED-B0760108A

PATIENT
  Age: 47 Year
  Sex: Female
  Weight: 92.7 kg

DRUGS (12)
  1. PRILOSEC [Concomitant]
     Route: 048
     Dates: start: 20100831
  2. SUSTIVA [Concomitant]
     Indication: HIV INFECTION
     Dosage: 600MG AT NIGHT
     Dates: start: 20081030
  3. PROAIR HFA [Concomitant]
     Indication: CHRONIC OBSTRUCTIVE PULMONARY DISEASE
     Route: 055
     Dates: start: 20101123
  4. NIACIN [Concomitant]
     Route: 048
     Dates: start: 20100126
  5. LIPITOR [Concomitant]
     Route: 048
     Dates: start: 20110802
  6. DARUNAVIR [Concomitant]
     Indication: HIV INFECTION
     Dosage: 800MG PER DAY
     Dates: start: 20100525
  7. TRICOR [Concomitant]
     Indication: HYPERCHOLESTEROLAEMIA
     Route: 048
     Dates: start: 20101123
  8. LISINOPRIL AND HYDROCHLOROTHIAZIDE [Concomitant]
     Route: 048
     Dates: start: 20110802
  9. RITONAVIR [Concomitant]
     Indication: HIV INFECTION
     Dosage: 100MG PER DAY
     Dates: start: 20100525
  10. VITAMIN D [Concomitant]
     Route: 048
     Dates: start: 20100126
  11. CALCIUM [Concomitant]
     Indication: OSTEOPENIA
     Route: 048
     Dates: start: 20100831
  12. MARAVIROC [Suspect]
     Indication: HIV INFECTION
     Dosage: 150MG TWICE PER DAY
     Route: 048
     Dates: start: 20081216

REACTIONS (3)
  - HYPOXIA [None]
  - URINARY TRACT INFECTION [None]
  - ABDOMINAL SEPSIS [None]
